FAERS Safety Report 10872635 (Version 4)
Quarter: 2016Q3

REPORT INFORMATION
  Report Type: Spontaneous
  Country: JP (occurrence: JP)
  Receive Date: 20150227
  Receipt Date: 20160825
  Transmission Date: 20161109
  Serious: Yes (Hospitalization)
  Sender: FDA-Public Use
  Company Number: JP-BRISTOL-MYERS SQUIBB COMPANY-BMS-2015-010680

PATIENT
  Age: 76 Year
  Sex: Female

DRUGS (3)
  1. METGLUCO [Suspect]
     Active Substance: METFORMIN HYDROCHLORIDE
     Indication: TYPE 2 DIABETES MELLITUS
     Dosage: 500 MG, BID
     Route: 048
     Dates: start: 201205, end: 20140919
  2. NESINA [Concomitant]
     Active Substance: ALOGLIPTIN BENZOATE
     Indication: TYPE 2 DIABETES MELLITUS
     Dosage: 25 MG, UNK
     Route: 048
     Dates: start: 201106
  3. BLOPRESS [Concomitant]
     Active Substance: CANDESARTAN CILEXETIL
     Indication: HYPERTENSION
     Dosage: 4 MG, UNK
     Route: 048
     Dates: start: 20110301

REACTIONS (1)
  - Ileus [Recovered/Resolved]

NARRATIVE: CASE EVENT DATE: 20140919
